FAERS Safety Report 6356703-5 (Version None)
Quarter: 2009Q3

REPORT INFORMATION
  Report Type: 
  Country: None (occurrence: None)
  Receive Date: 20090915
  Receipt Date: 20090909
  Transmission Date: 20100115
  Serious: Yes (Other)
  Sender: FDA-Public Use
  Company Number: US-AMGEN-QUU363571

PATIENT
  Sex: Male

DRUGS (13)
  1. ARANESP [Suspect]
     Indication: RENAL FAILURE CHRONIC
     Dates: start: 20070101
  2. ZYVOX [Concomitant]
  3. LOVENOX [Concomitant]
  4. STARLIX [Concomitant]
  5. ATROVENT [Concomitant]
  6. NOVOLIN R [Concomitant]
  7. FERROUS SULFATE TAB [Concomitant]
  8. LORTAB [Concomitant]
  9. LIPITOR [Concomitant]
  10. AVANDIA [Concomitant]
  11. WELLBUTRIN [Concomitant]
  12. SEROQUEL [Concomitant]
  13. DIOVAN [Concomitant]

REACTIONS (4)
  - APLASIA PURE RED CELL [None]
  - INFECTION [None]
  - LIMB INJURY [None]
  - STAPHYLOCOCCAL INFECTION [None]
